FAERS Safety Report 7693097-7 (Version None)
Quarter: 2011Q3

REPORT INFORMATION
  Report Type: 
  Country: None (occurrence: None)
  Receive Date: 20110819
  Receipt Date: 20110816
  Transmission Date: 20111222
  Serious: Yes (Other)
  Sender: FDA-Public Use
  Company Number: CA-BAYER-2011-068279

PATIENT
  Sex: Female

DRUGS (1)
  1. INTERFERON BETA-1B [Suspect]
     Indication: MULTIPLE SCLEROSIS
     Dosage: 8 MIU, QOD
     Route: 058
     Dates: start: 20011201

REACTIONS (6)
  - MIGRAINE [None]
  - CHEST DISCOMFORT [None]
  - TREMOR [None]
  - DYSPNOEA [None]
  - CHEST PAIN [None]
  - FEELING ABNORMAL [None]
